FAERS Safety Report 9779842 (Version 2)
Quarter: 2015Q2

REPORT INFORMATION
  Report Type: Spontaneous
  Country: AT (occurrence: AT)
  Receive Date: 20131223
  Receipt Date: 20150603
  Transmission Date: 20150821
  Serious: Yes (Other)
  Sender: FDA-Public Use
  Company Number: PHHY2013AT147082

PATIENT
  Sex: Male

DRUGS (8)
  1. METHOTREXATE [Suspect]
     Active Substance: METHOTREXATE
     Indication: CYSTOID MACULAR OEDEMA
  2. LEFLUNOMIDE. [Suspect]
     Active Substance: LEFLUNOMIDE
     Indication: UVEITIS
     Dosage: 20 MG, QD
     Route: 065
  3. METHOTREXATE [Suspect]
     Active Substance: METHOTREXATE
     Indication: UVEITIS
     Dosage: 25 MG, QW
     Route: 065
     Dates: end: 201003
  4. PREDNISOLONE. [Suspect]
     Active Substance: PREDNISOLONE
     Indication: UVEITIS
     Dosage: 10 MG, QD
     Route: 065
  5. INFLIXIMAB [Suspect]
     Active Substance: INFLIXIMAB
     Indication: CYSTOID MACULAR OEDEMA
  6. LEFLUNOMIDE. [Suspect]
     Active Substance: LEFLUNOMIDE
     Indication: CYSTOID MACULAR OEDEMA
  7. INFLIXIMAB [Suspect]
     Active Substance: INFLIXIMAB
     Indication: UVEITIS
     Dosage: 5 MG/KG, UNK
     Route: 065
     Dates: start: 2007
  8. PREDNISOLONE. [Suspect]
     Active Substance: PREDNISOLONE
     Indication: CYSTOID MACULAR OEDEMA

REACTIONS (7)
  - Weight increased [Unknown]
  - Treatment failure [Unknown]
  - Hypertension [Unknown]
  - Osteopenia [Unknown]
  - Uveitis [Recovered/Resolved]
  - Visual acuity reduced [Recovered/Resolved]
  - Drug intolerance [Unknown]

NARRATIVE: CASE EVENT DATE: 201003
